FAERS Safety Report 4527799-8 (Version None)
Quarter: 2004Q4

REPORT INFORMATION
  Report Type: 
  Country: None (occurrence: None)
  Receive Date: 20041215
  Receipt Date: 20041203
  Transmission Date: 20050328
  Serious: Yes (Other)
  Sender: FDA-Public Use
  Company Number: FR-GLAXOSMITHKLINE-B0358933A

PATIENT
  Age: 39 Year
  Sex: Female

DRUGS (10)
  1. SERETIDE [Suspect]
     Indication: ILL-DEFINED DISORDER
     Route: 055
     Dates: start: 20040112, end: 20040212
  2. VIOXX [Suspect]
     Route: 048
     Dates: start: 20040316, end: 20040326
  3. FUCIDINE CAP [Suspect]
     Dosage: 500MG PER DAY
     Route: 048
     Dates: start: 20040102, end: 20040109
  4. PANTOPRAZOLE [Suspect]
     Dosage: 40MG PER DAY
     Dates: start: 20040316, end: 20040330
  5. PREDNISOLONE [Concomitant]
     Dosage: 3UNIT PER DAY
     Route: 048
  6. CEFUROXIM [Concomitant]
  7. NECYRANE [Concomitant]
  8. BICLOTYMOL [Concomitant]
  9. AMBROXOL [Concomitant]
  10. PROPOFOL [Concomitant]

REACTIONS (1)
  - DRUG EXPOSURE DURING PREGNANCY [None]
